FAERS Safety Report 11526018 (Version 1)
Quarter: 2015Q3

REPORT INFORMATION
  Report Type: Report from Study
  Country: BR (occurrence: BR)
  Receive Date: 20150918
  Receipt Date: 20150918
  Transmission Date: 20151125
  Serious: Yes (Death, Hospitalization, Other)
  Sender: FDA-Public Use
  Company Number: PHHY2015BR112223

PATIENT
  Sex: Male

DRUGS (4)
  1. EXELON [Suspect]
     Active Substance: RIVASTIGMINE TARTRATE
     Indication: DEMENTIA ALZHEIMER^S TYPE
     Dosage: 1 DF, QD
     Route: 065
     Dates: start: 2008
  2. EXELON PATCH [Suspect]
     Active Substance: RIVASTIGMINE
     Indication: DEMENTIA ALZHEIMER^S TYPE
     Dosage: 13.3 MG, QD (15 CM2 PATCH)
     Route: 062
     Dates: start: 2008, end: 201409
  3. SERTRALINE [Suspect]
     Active Substance: SERTRALINE HYDROCHLORIDE
     Indication: CRYING
     Dosage: 30 MG, UNK
     Route: 065
     Dates: end: 201409
  4. SERTRALINE [Suspect]
     Active Substance: SERTRALINE HYDROCHLORIDE
     Indication: DEPRESSION
     Dosage: 10 MG, BID (1 IN THE MORNING AND 1 IN THE NIGHT)
     Route: 065
     Dates: start: 2008

REACTIONS (7)
  - Mental retardation [Unknown]
  - Psychotic disorder [Unknown]
  - Memory impairment [Unknown]
  - Cardiac disorder [Unknown]
  - Dementia Alzheimer^s type [Unknown]
  - Concomitant disease aggravated [Unknown]
  - Brain cancer metastatic [Fatal]
